FAERS Safety Report 10145532 (Version 1)
Quarter: 2014Q2

REPORT INFORMATION
  Report Type: Spontaneous
  Country: US (occurrence: US)
  Receive Date: 20140501
  Receipt Date: 20140501
  Transmission Date: 20141212
  Serious: No
  Sender: FDA-Public Use
  Company Number: US-009507513-1404USA010803

PATIENT
  Sex: Female

DRUGS (4)
  1. EMEND [Suspect]
     Indication: NAUSEA
     Dosage: 150 MG, UNK
     Route: 042
     Dates: start: 20140326
  2. CARBOPLATIN [Concomitant]
  3. ETOPOSIDE [Concomitant]
  4. DEXAMETHASONE [Concomitant]
     Route: 048

REACTIONS (1)
  - Platelet count decreased [Not Recovered/Not Resolved]
